FAERS Safety Report 5856375-X (Version None)
Quarter: 2008Q3

REPORT INFORMATION
  Report Type: 
  Country: None (occurrence: None)
  Receive Date: 20080825
  Receipt Date: 20080814
  Transmission Date: 20090109
  Serious: Yes (Other)
  Sender: FDA-Public Use
  Company Number: US-JNJFOC-20080801127

PATIENT
  Sex: Female
  Weight: 112.04 kg

DRUGS (38)
  1. REMICADE [Suspect]
  2. REMICADE [Suspect]
  3. REMICADE [Suspect]
  4. REMICADE [Suspect]
  5. REMICADE [Suspect]
  6. REMICADE [Suspect]
  7. REMICADE [Suspect]
  8. REMICADE [Suspect]
  9. REMICADE [Suspect]
  10. REMICADE [Suspect]
  11. REMICADE [Suspect]
  12. REMICADE [Suspect]
  13. REMICADE [Suspect]
  14. REMICADE [Suspect]
  15. REMICADE [Suspect]
  16. REMICADE [Suspect]
  17. REMICADE [Suspect]
  18. REMICADE [Suspect]
  19. REMICADE [Suspect]
  20. REMICADE [Suspect]
  21. REMICADE [Suspect]
  22. REMICADE [Suspect]
  23. REMICADE [Suspect]
  24. REMICADE [Suspect]
  25. REMICADE [Suspect]
  26. REMICADE [Suspect]
  27. REMICADE [Suspect]
  28. REMICADE [Suspect]
  29. REMICADE [Suspect]
  30. REMICADE [Suspect]
  31. REMICADE [Suspect]
  32. REMICADE [Suspect]
  33. REMICADE [Suspect]
  34. REMICADE [Suspect]
  35. REMICADE [Suspect]
  36. REMICADE [Suspect]
  37. REMICADE [Suspect]
     Indication: CROHN'S DISEASE
     Dosage: 5 INFUSIONS PRIOR TO BASELINE
  38. MERCAPTOPURINE [Suspect]
     Indication: CROHN'S DISEASE

REACTIONS (1)
  - BREAST CANCER [None]
